FAERS Safety Report 6083874-0 (Version None)
Quarter: 2009Q1

REPORT INFORMATION
  Report Type: 
  Country: None (occurrence: None)
  Receive Date: 20090217
  Receipt Date: 20090217
  Transmission Date: 20090719
  Serious: Yes (Hospitalization)
  Sender: FDA-Public Use
  Company Number: None

PATIENT
  Sex: Female
  Weight: 127 kg

DRUGS (9)
  1. CARBOPLATIN [Suspect]
     Indication: BREAST CANCER
     Dosage: 2 AUC WEEKLY IV
     Route: 042
     Dates: end: 20090202
  2. ABRAXANE [Suspect]
     Indication: BREAST CANCER
     Dosage: 100MG/M2 WEEKLY IV
     Route: 042
     Dates: end: 20090202
  3. GLYBURIDE [Concomitant]
  4. BENAZEPRIL HYDROCHLORIDE [Concomitant]
  5. LANTUS [Concomitant]
  6. LASIX [Concomitant]
  7. METOLAZONE [Concomitant]
  8. CYMBALTA [Concomitant]
  9. HERCEPTIN [Concomitant]

REACTIONS (1)
  - PLEURAL EFFUSION [None]
